FAERS Safety Report 17214131 (Version 2)
Quarter: 2020Q3

REPORT INFORMATION
  Report Type: Spontaneous
  Country: US (occurrence: US)
  Receive Date: 20191230
  Receipt Date: 20200714
  Transmission Date: 20201102
  Serious: No
  Sender: FDA-Public Use
  Company Number: US-PFIZER INC-2019556553

PATIENT
  Age: 71 Year
  Sex: Female

DRUGS (1)
  1. XALKORI [Suspect]
     Active Substance: CRIZOTINIB
     Indication: RESPIRATORY TRACT CARCINOMA IN SITU
     Dosage: 250 MG

REACTIONS (2)
  - Malaise [Unknown]
  - Cardiac disorder [Unknown]
